FAERS Safety Report 7299787-2 (Version None)
Quarter: 2011Q1

REPORT INFORMATION
  Report Type: 
  Country: None (occurrence: None)
  Receive Date: 20110217
  Receipt Date: 20110208
  Transmission Date: 20110831
  Serious: Yes (Hospitalization)
  Sender: FDA-Public Use
  Company Number: US-ASTRAZENECA-2010SE50086

PATIENT
  Age: 58 Year
  Sex: Female

DRUGS (13)
  1. SEROQUEL [Suspect]
     Indication: MAJOR DEPRESSION
     Route: 048
     Dates: start: 20090101
  2. SEROQUEL [Suspect]
     Route: 048
     Dates: start: 20101001
  3. VISTARIL [Concomitant]
     Route: 065
  4. SEROQUEL [Suspect]
     Route: 048
     Dates: start: 20101001
  5. SEROQUEL [Suspect]
     Indication: PSYCHOTIC BEHAVIOUR
     Route: 048
     Dates: start: 20090101
  6. ROSERVUM [Concomitant]
     Indication: SLEEP DISORDER
     Route: 065
  7. SEROQUEL [Suspect]
     Route: 048
     Dates: start: 20100901, end: 20101001
  8. SEROQUEL [Suspect]
     Route: 048
     Dates: start: 20100901, end: 20101001
  9. LAMICTAL [Concomitant]
     Indication: INSOMNIA
     Route: 065
  10. LEXAPRO [Concomitant]
     Route: 065
  11. SEROQUEL [Suspect]
     Indication: MANIA
     Route: 048
     Dates: start: 20090101
  12. SEROQUEL [Suspect]
     Route: 048
     Dates: start: 20101001
  13. SEROQUEL [Suspect]
     Route: 048
     Dates: start: 20100901, end: 20101001

REACTIONS (3)
  - CARDIAC DISORDER [None]
  - BLOOD GLUCOSE INCREASED [None]
  - MANIA [None]
